FAERS Safety Report 23698303 (Version 1)
Quarter: 2024Q2

REPORT INFORMATION
  Report Type: Spontaneous
  Country: IT (occurrence: IT)
  Receive Date: 20240402
  Receipt Date: 20240402
  Transmission Date: 20240716
  Serious: Yes (Other)
  Sender: FDA-Public Use
  Company Number: IT-B.Braun Medical Inc.-2155144

PATIENT
  Age: 14 Year
  Sex: Female
  Weight: 0.85 kg

DRUGS (4)
  1. MEROPENEM [Suspect]
     Active Substance: MEROPENEM
     Indication: Sepsis
     Route: 042
     Dates: start: 20220808, end: 20220815
  2. CAFFEINE [Concomitant]
     Active Substance: CAFFEINE
  3. FLUCONAZOLE [Concomitant]
     Active Substance: FLUCONAZOLE
  4. AMINO ACIDS\DEXTROSE\ELECTROLYTES NOS\SOYBEAN OIL [Concomitant]
     Active Substance: AMINO ACIDS\DEXTROSE\ELECTROLYTES NOS\SOYBEAN OIL

REACTIONS (2)
  - Cholestasis [Recovered/Resolved with Sequelae]
  - Off label use [Recovered/Resolved with Sequelae]
